FAERS Safety Report 17299291 (Version 1)
Quarter: 2020Q1

REPORT INFORMATION
  Report Type: Spontaneous
  Country: FR (occurrence: FR)
  Receive Date: 20200121
  Receipt Date: 20200121
  Transmission Date: 20200409
  Serious: Yes (Hospitalization)
  Sender: FDA-Public Use
  Company Number: FR-009507513-2001FRA004624

PATIENT
  Age: 80 Year
  Sex: Male
  Weight: 71 kg

DRUGS (2)
  1. SIVEXTRO [Suspect]
     Active Substance: TEDIZOLID PHOSPHATE
     Indication: INFECTION
     Dosage: 400 MILLIGRAM, QD
     Route: 048
     Dates: start: 20191121, end: 20191206
  2. RIFADIN [Suspect]
     Active Substance: RIFAMPIN
     Indication: INFECTION
     Dosage: 900 MILLIGRAM, QD
     Route: 048
     Dates: start: 20191121

REACTIONS (1)
  - Thrombocytopenia [Not Recovered/Not Resolved]

NARRATIVE: CASE EVENT DATE: 20191205
